FAERS Safety Report 6425865-3 (Version None)
Quarter: 2009Q4

REPORT INFORMATION
  Report Type: 
  Country: None (occurrence: None)
  Receive Date: 20091103
  Receipt Date: 20091008
  Transmission Date: 20100525
  Serious: No
  Sender: FDA-Public Use
  Company Number: US-ABBOTT-09P-163-0601484-00

PATIENT
  Age: 55 Year
  Sex: Female

DRUGS (3)
  1. BIAXIN [Suspect]
     Indication: SINUSITIS
     Route: 048
     Dates: start: 20091002, end: 20091005
  2. BIAXIN [Suspect]
     Indication: OROPHARYNGEAL PAIN
     Route: 048
     Dates: start: 20091002, end: 20091005
  3. DESIPRAMINE [Suspect]
     Indication: DEPRESSION
     Route: 048

REACTIONS (8)
  - AMNESIA [None]
  - BODY TEMPERATURE [None]
  - DELIRIUM [None]
  - DIPLOPIA [None]
  - FATIGUE [None]
  - GAIT DISTURBANCE [None]
  - HYPERSOMNIA [None]
  - VERTIGO [None]
